FAERS Safety Report 4862042-1 (Version None)
Quarter: 2005Q4

REPORT INFORMATION
  Report Type: 
  Country: None (occurrence: None)
  Receive Date: 20051221
  Receipt Date: 20051213
  Transmission Date: 20060501
  Serious: Yes (Hospitalization, Other)
  Sender: FDA-Public Use
  Company Number: GB-JNJFOC-20051203504

PATIENT
  Sex: Male
  Weight: 55 kg

DRUGS (10)
  1. REMICADE [Suspect]
     Indication: RHEUMATOID ARTHRITIS
     Route: 042
  2. METHOTREXATE [Concomitant]
  3. PREDNISOLONE [Concomitant]
  4. CALCICHEW [Concomitant]
  5. DF 118 [Concomitant]
  6. DOXYCYCLINE [Concomitant]
  7. FOLIC ACID [Concomitant]
  8. LIQUIFILM TEARS [Concomitant]
  9. LIQUIFILM TEARS [Concomitant]
  10. SALBUTAMOL [Concomitant]

REACTIONS (1)
  - THROMBOSIS [None]
